FAERS Safety Report 4762726-X (Version None)
Quarter: 2005Q3

REPORT INFORMATION
  Report Type: 
  Country: None (occurrence: None)
  Receive Date: 20050907
  Receipt Date: 20050826
  Transmission Date: 20060218
  Serious: Yes (Hospitalization)
  Sender: FDA-Public Use
  Company Number: FR-ROCHE-415570

PATIENT
  Age: 33 Year
  Sex: Male

DRUGS (11)
  1. ROVALCYTE [Suspect]
     Indication: DRUG USE FOR UNKNOWN INDICATION
     Dosage: REPORTED AS 2 DOSES PER DAY.
     Route: 048
     Dates: end: 20050726
  2. LEXOMIL [Suspect]
     Indication: DRUG USE FOR UNKNOWN INDICATION
     Dosage: 0.5 DOSE PER DAY.
     Route: 048
     Dates: start: 20050708, end: 20050803
  3. LASILIX [Suspect]
     Indication: DRUG USE FOR UNKNOWN INDICATION
     Dosage: REPORTED AS 0.5 DOSE PER DAY.
     Route: 048
     Dates: end: 20050803
  4. CEFUROXIME AXETIL [Suspect]
     Indication: DRUG USE FOR UNKNOWN INDICATION
     Dosage: REPORTED AS 2 DOSES PER DAY.
     Route: 048
     Dates: end: 20050803
  5. VFEND [Suspect]
     Indication: DRUG USE FOR UNKNOWN INDICATION
     Dosage: REPORTED AS 2 DOSES PER DAY.
     Route: 048
     Dates: start: 20050708, end: 20050803
  6. CIFLOX [Suspect]
     Indication: DRUG USE FOR UNKNOWN INDICATION
     Dosage: REPORTED AS 2 DOSES PER DAY.
     Route: 048
     Dates: end: 20050803
  7. CELLCEPT [Concomitant]
  8. NEORAL [Concomitant]
  9. CORTANCYL [Concomitant]
  10. ZELITREX [Concomitant]
  11. NEXIUM [Concomitant]
     Dosage: REPORTED AS 0.5 DOSE PER DAY

REACTIONS (1)
  - ATRIAL FLUTTER [None]
